FAERS Safety Report 23172762 (Version 1)
Quarter: 2023Q4

REPORT INFORMATION
  Report Type: Report from Study
  Country: US (occurrence: US)
  Receive Date: 20231110
  Receipt Date: 20231110
  Transmission Date: 20240109
  Serious: Yes (Death, Hospitalization, Other)
  Sender: FDA-Public Use
  Company Number: US-BAYER-2023A145062

PATIENT
  Age: 86 Year
  Sex: Female

DRUGS (5)
  1. ADEMPAS [Suspect]
     Active Substance: RIOCIGUAT
     Indication: Pulmonary arterial hypertension
     Dosage: UNK
  2. ADEMPAS [Suspect]
     Active Substance: RIOCIGUAT
     Indication: Pulmonary arterial hypertension
     Dosage: 1.5 MG, TID
     Dates: start: 202010
  3. HYDROCODONE [Concomitant]
     Active Substance: HYDROCODONE
  4. ROPINIROLE [Concomitant]
     Active Substance: ROPINIROLE
  5. ATIVAN [Concomitant]
     Active Substance: LORAZEPAM

REACTIONS (5)
  - Fall [Fatal]
  - Cerebral haemorrhage [Fatal]
  - Deafness unilateral [None]
  - Dizziness [None]
  - Balance disorder [None]
